FAERS Safety Report 6856816-5 (Version None)
Quarter: 2010Q3

REPORT INFORMATION
  Report Type: 
  Country: None (occurrence: None)
  Receive Date: 20100719
  Receipt Date: 20100714
  Transmission Date: 20110219
  Serious: Yes (Hospitalization)
  Sender: FDA-Public Use
  Company Number: NL-BRISTOL-MYERS SQUIBB COMPANY-15172505

PATIENT
  Age: 70 Year
  Sex: Male
  Weight: 86 kg

DRUGS (13)
  1. CISPLATIN [Suspect]
     Indication: NON-SMALL CELL LUNG CANCER STAGE III
     Dosage: LAST DOSE ON 31MAY10
     Route: 042
     Dates: start: 20100503
  2. ETOPOSIDE [Suspect]
     Indication: NON-SMALL CELL LUNG CANCER STAGE III
     Dosage: LAST DOSE ON 31MAY10
     Route: 042
     Dates: start: 20100503
  3. RADIATION THERAPY [Suspect]
     Indication: NON-SMALL CELL LUNG CANCER STAGE III
     Dosage: 1 DF= 60GY. LAST DOSE ON 11JUN10
     Dates: start: 20100503
  4. DEXAMETHASONE ACETATE [Concomitant]
     Indication: PROPHYLAXIS
     Dates: start: 20100503
  5. SYMBICORT [Concomitant]
     Indication: DYSPNOEA
     Dates: start: 20100326
  6. MOVICOLON [Concomitant]
     Indication: PROPHYLAXIS
     Dates: start: 20100503
  7. PRIMPERAN TAB [Concomitant]
     Indication: PROPHYLAXIS
     Dates: start: 20100503
  8. ZOFRAN [Concomitant]
     Indication: PROPHYLAXIS
     Dates: start: 20100503
  9. EMEND [Concomitant]
     Indication: PROPHYLAXIS
     Dates: start: 20100503
  10. SUCRALFATE [Concomitant]
     Indication: OESOPHAGEAL PAIN
     Dates: start: 20100613
  11. PARACETAMOL [Concomitant]
     Indication: OESOPHAGEAL PAIN
     Dates: start: 20100613
  12. FOLIC ACID [Concomitant]
     Indication: PROPHYLAXIS
     Dates: end: 20100615
  13. VITAMIN B-12 [Concomitant]
     Indication: PROPHYLAXIS
     Dates: end: 20100615

REACTIONS (1)
  - ATRIAL FIBRILLATION [None]
